FAERS Safety Report 8326142-6 (Version None)
Quarter: 2012Q2

REPORT INFORMATION
  Report Type: 
  Country: None (occurrence: None)
  Receive Date: 20120501
  Receipt Date: 20120423
  Transmission Date: 20120825
  Serious: Yes (Hospitalization, Other)
  Sender: FDA-Public Use
  Company Number: US-ASTRAZENECA-2011SE27057

PATIENT
  Age: 57 Year
  Sex: Male
  Weight: 64.4 kg

DRUGS (19)
  1. COREG [Concomitant]
     Dosage: BY G-TUBE, ONCE DAILY
     Dates: start: 20111013
  2. IBUPROFEN (ADVIL) [Concomitant]
     Indication: PAIN
     Dosage: 20-40 ML OF (100 MG/ 5 ML) BY G-TUBE Q 4-8 HRS AS DIRECTED
  3. COLACE [Concomitant]
     Dosage: 10 ML OF 100 MG / 10 ML BY G-TUBE 1 X DAY AS NEEDED.
     Dates: start: 20111205
  4. GUAIFENESIN [Concomitant]
     Indication: INCREASED VISCOSITY OF BRONCHIAL SECRETION
     Dosage: 100MG/ 5 ML, 30-60 ML BY G-TUBE BID AS NEEDED.
  5. IBUPROFEN [Concomitant]
     Indication: PAIN
     Dosage: 100 MG/5 ML, BY G-TUBE Q 4 HRS AS NEEDED.
     Dates: start: 20111014
  6. SENOKOT [Concomitant]
     Indication: CONSTIPATION
     Dosage: 5-20 ML OF 8.8 MG/5 ML BY G-TUBE BID AS NEEDED.
     Dates: start: 20111014
  7. MORPHINE [Concomitant]
  8. LORTAB [Concomitant]
     Dosage: 10/325 MG , BY G-TUBE, Q 4 HRS AS NEEDED
     Dates: start: 20111013
  9. PREVACID [Concomitant]
     Dosage: 10 ML OF (3 MG/ 1ML) BY G-TUBE BID
     Dates: start: 20120124
  10. SEROQUEL [Suspect]
     Indication: BIPOLAR DISORDER
     Route: 048
     Dates: start: 20050101
  11. MORPHINE SULFATE [Concomitant]
     Indication: PAIN
     Dosage: 20 MG/1 ML, BY G-TUBE Q 2 HRS AS NEEDED.
     Dates: start: 20111013
  12. MORPHINE SULFATE [Concomitant]
     Indication: DYSPNOEA
     Dosage: 20 MG/1 ML, BY G-TUBE Q 2 HRS AS NEEDED.
     Dates: start: 20111013
  13. DURAGESIC-100 [Concomitant]
     Dosage: Q 72 HRS
     Route: 062
     Dates: start: 20111013
  14. MORPHINE SULFATE [Concomitant]
     Route: 048
     Dates: start: 20111205
  15. RANITIDINE [Concomitant]
  16. IBUPROFEN (ADVIL) [Concomitant]
     Indication: INFLAMMATION
     Dosage: 20-40 ML OF (100 MG/ 5 ML) BY G-TUBE Q 4-8 HRS AS DIRECTED
  17. SEROQUEL [Suspect]
     Indication: DEPRESSION
     Route: 048
     Dates: start: 20050101
  18. MORPHINE SULFATE [Concomitant]
     Route: 048
     Dates: start: 20111205
  19. ZANTAC [Concomitant]
     Dosage: BY G-TUBE, BID
     Dates: start: 20111013

REACTIONS (7)
  - PAIN [None]
  - WEIGHT DECREASED [None]
  - NEOPLASM MALIGNANT [None]
  - OESOPHAGEAL CARCINOMA [None]
  - SECRETION DISCHARGE [None]
  - DYSPNOEA [None]
  - CONSTIPATION [None]
